FAERS Safety Report 17382351 (Version 1)
Quarter: 2020Q1

REPORT INFORMATION
  Report Type: Spontaneous
  Country: JP (occurrence: JP)
  Receive Date: 20200206
  Receipt Date: 20200206
  Transmission Date: 20200409
  Serious: Yes (Death)
  Sender: FDA-Public Use
  Company Number: JP-ELI_LILLY_AND_COMPANY-JP202002001409

PATIENT
  Age: 65 Year
  Sex: Female

DRUGS (2)
  1. CYRAMZA [Suspect]
     Active Substance: RAMUCIRUMAB
     Indication: SQUAMOUS CELL CARCINOMA OF LUNG
     Dosage: 10 MG/KG, CYCLICAL
     Route: 042
     Dates: start: 20191113, end: 20200115
  2. DOCETAXEL. [Concomitant]
     Active Substance: DOCETAXEL
     Indication: SQUAMOUS CELL CARCINOMA OF LUNG
     Dosage: 60 MG/M2, CYCLICAL
     Route: 041
     Dates: start: 20191113, end: 20200115

REACTIONS (1)
  - Large intestine perforation [Fatal]

NARRATIVE: CASE EVENT DATE: 20200118
